FAERS Safety Report 20861125 (Version 1)
Quarter: 2022Q2

REPORT INFORMATION
  Report Type: Spontaneous
  Country: US (occurrence: None)
  Receive Date: 20220520
  Receipt Date: 20220520
  Transmission Date: 20220721
  Serious: Yes (Hospitalization)
  Sender: FDA-Public Use
  Company Number: None

PATIENT
  Age: 71 Year
  Sex: Male
  Weight: 74.8 kg

DRUGS (10)
  1. NEOSTIGMINE [Suspect]
     Active Substance: NEOSTIGMINE
  2. ROCURONIUM [Concomitant]
     Active Substance: ROCURONIUM BROMIDE
     Dates: start: 20220519
  3. PROPOFOL [Concomitant]
     Active Substance: PROPOFOL
     Dates: start: 20220519
  4. ZOFRAN [Concomitant]
     Active Substance: ONDANSETRON HYDROCHLORIDE
     Dates: start: 20220519
  5. gemzar for bladder instillation [Concomitant]
     Dates: start: 20220519
  6. FENTANYL [Concomitant]
     Active Substance: FENTANYL
     Dates: start: 20220519
  7. ANCEF [Concomitant]
     Active Substance: CEFAZOLIN SODIUM
     Dates: start: 20220519
  8. DECADRON [Concomitant]
     Active Substance: DEXAMETHASONE
     Dates: start: 20220519
  9. SUGAMMADEX [Concomitant]
     Active Substance: SUGAMMADEX
     Dates: start: 20220519
  10. SODIUM CHLORIDE [Concomitant]
     Active Substance: SODIUM CHLORIDE
     Dates: start: 20220519

REACTIONS (1)
  - Bradycardia [None]

NARRATIVE: CASE EVENT DATE: 20220519
